FAERS Safety Report 10972009 (Version 1)
Quarter: 2015Q1

REPORT INFORMATION
  Report Type: Spontaneous
  Country: IT (occurrence: IT)
  Receive Date: 20150331
  Receipt Date: 20150331
  Transmission Date: 20150721
  Serious: Yes (Other)
  Sender: FDA-Public Use
  Company Number: PHHY2015IT035097

PATIENT
  Age: 82 Year
  Sex: Female

DRUGS (4)
  1. FENTANEST//FENTANYL [Concomitant]
     Indication: GENERAL ANAESTHESIA
     Dosage: 700 UG, UNK
     Route: 042
     Dates: start: 20150220, end: 20150220
  2. METILTIONINIO [Interacting]
     Active Substance: METHYLENE BLUE ANHYDROUS
     Indication: VASOPLEGIA SYNDROME
     Dosage: 200 MG, ONCE/SINGLE
     Route: 042
     Dates: start: 20150220, end: 20150220
  3. NORADRENALINA TARTRATO [Concomitant]
     Indication: VASOPLEGIA SYNDROME
     Dosage: 0.05 UG/KG, UNK
     Route: 042
     Dates: start: 20150220, end: 20150221
  4. CITALOPRAM [Suspect]
     Active Substance: CITALOPRAM HYDROBROMIDE
     Indication: DEPRESSION
     Dosage: 10 DRP, QD
     Route: 048
     Dates: start: 20150101, end: 20150220

REACTIONS (5)
  - Nystagmus [Unknown]
  - Musculoskeletal stiffness [Unknown]
  - Serotonin syndrome [Unknown]
  - Hyporesponsive to stimuli [Unknown]
  - Drug interaction [Unknown]

NARRATIVE: CASE EVENT DATE: 20150221
